FAERS Safety Report 19379304 (Version 2)
Quarter: 2021Q2

REPORT INFORMATION
  Report Type: Report from Study
  Country: None (occurrence: ES)
  Receive Date: 20210607
  Receipt Date: 20210615
  Transmission Date: 20210717
  Serious: Yes (Hospitalization, Other)
  Sender: FDA-Public Use
  Company Number: ES-ABBVIE-21K-144-3929915-00

PATIENT
  Age: 47 Year
  Sex: Female
  Weight: 56 kg

DRUGS (2)
  1. DUODOPA [Suspect]
     Active Substance: CARBIDOPA\LEVODOPA
  2. DUODOPA [Suspect]
     Active Substance: CARBIDOPA\LEVODOPA
     Indication: PARKINSON^S DISEASE
     Route: 050
     Dates: start: 20210527, end: 20210529

REACTIONS (8)
  - Abdominal pain [Recovering/Resolving]
  - Peritoneal disorder [Recovered/Resolved]
  - Pneumoperitoneum [Unknown]
  - Peritonitis [Recovering/Resolving]
  - Device dislocation [Unknown]
  - Device leakage [Unknown]
  - Fatigue [Unknown]
  - Palpitations [Recovering/Resolving]

NARRATIVE: CASE EVENT DATE: 2021
